FAERS Safety Report 13321513 (Version 2)
Quarter: 2018Q2

REPORT INFORMATION
  Report Type: Spontaneous
  Country: GB (occurrence: KW)
  Receive Date: 20170309
  Receipt Date: 20180421
  Transmission Date: 20180711
  Serious: Yes (Other)
  Sender: FDA-Public Use
  Company Number: GB-ROCHE-1901233

PATIENT
  Age: 48 Year
  Sex: Female

DRUGS (3)
  1. PROLIA [Suspect]
     Active Substance: DENOSUMAB
     Indication: PRODUCT USED FOR UNKNOWN INDICATION
     Route: 065
  2. CAPECITABINE. [Suspect]
     Active Substance: CAPECITABINE
     Indication: PRODUCT USED FOR UNKNOWN INDICATION
     Dosage: UNK
     Route: 065
  3. LEPONEX [Suspect]
     Active Substance: CLOZAPINE
     Indication: SCHIZOPHRENIA
     Route: 048
     Dates: start: 20060201

REACTIONS (5)
  - Thrombocytopenia [Unknown]
  - Metastases to bone [Unknown]
  - Metastatic neoplasm [Unknown]
  - Anaemia [Unknown]
  - Metastases to liver [Unknown]

NARRATIVE: CASE EVENT DATE: 201701
